FAERS Safety Report 9752721 (Version 2)
Quarter: 2013Q4

REPORT INFORMATION
  Report Type: Report from Study
  Country: US (occurrence: US)
  Receive Date: 20131213
  Receipt Date: 20131218
  Transmission Date: 20140711
  Serious: Yes (Death)
  Sender: FDA-Public Use
  Company Number: US-ASTELLAS-2013EU010983

PATIENT
  Age: 84 Year
  Sex: Male
  Weight: 84 kg

DRUGS (16)
  1. BLINDED ENZALUTAMIDE [Suspect]
     Indication: PROSTATE CANCER
     Dosage: 160 MG, UID/QD
     Route: 048
     Dates: start: 20130827, end: 20131106
  2. BLINDED ENZALUTAMIDE [Suspect]
     Dosage: 160 MG, UID/QD
     Route: 048
     Dates: start: 20131115
  3. TYLENOL                            /00020001/ [Concomitant]
     Indication: BACK PAIN
     Dosage: 1300 MG, PRN
     Route: 048
     Dates: start: 2000
  4. FUROSEMIDE [Concomitant]
     Indication: HYPERTENSION
     Dosage: 40 MG, UID/QD
     Route: 048
     Dates: start: 1993
  5. GUAIFENESIN [Concomitant]
     Indication: CHRONIC OBSTRUCTIVE PULMONARY DISEASE
     Dosage: 600 MG, UID/QD
     Route: 048
     Dates: start: 2003
  6. RYTHMOL                            /00546301/ [Concomitant]
     Indication: ATRIAL FIBRILLATION
     Dosage: 325 MG, BID
     Route: 048
     Dates: start: 2003
  7. HYDRALAZINE [Concomitant]
     Indication: HYPERTENSION
     Dosage: 25 MG, BID
     Route: 048
     Dates: start: 2003
  8. PRESERVISION [Concomitant]
     Indication: VITAMIN SUPPLEMENTATION
     Dosage: 1 DF, BID
     Route: 048
     Dates: start: 2003
  9. ASPIRIN [Concomitant]
     Indication: PROPHYLAXIS
     Dosage: 81 MG, UID/QD
     Route: 048
     Dates: start: 201304
  10. ROCALTROL [Concomitant]
     Indication: OSTEOPOROSIS
     Dosage: 0.25 MG, UID/QD
     Route: 048
     Dates: start: 20130622
  11. ROPINIROLE [Concomitant]
     Indication: RESTLESS LEGS SYNDROME
     Dosage: 0.5 MG, BID
     Route: 048
     Dates: start: 2008
  12. TRAMADOL [Concomitant]
     Indication: BACK PAIN
     Dosage: 50 MG, BID
     Route: 048
     Dates: start: 2008
  13. OMEGA 3                            /01334101/ [Concomitant]
     Indication: VITAMIN SUPPLEMENTATION
     Dosage: 500 MG, UID/QD
     Route: 048
     Dates: start: 2011
  14. CITRACAL                           /00751520/ [Concomitant]
     Indication: OSTEOPOROSIS
     Dosage: 2 MG, BID
     Route: 048
     Dates: start: 20130827
  15. COLACE [Concomitant]
     Indication: CONSTIPATION PROPHYLAXIS
     Dosage: 2 DF, PRN
     Route: 048
     Dates: start: 20130922
  16. ZOFRAN                             /00955301/ [Concomitant]
     Indication: NAUSEA
     Dosage: 8 MG, PRN
     Route: 048
     Dates: start: 20130906

REACTIONS (1)
  - Pneumonia [Fatal]
